FAERS Safety Report 13871562 (Version 1)
Quarter: 2017Q3

REPORT INFORMATION
  Report Type: Spontaneous
  Country: US (occurrence: None)
  Receive Date: 20170814
  Receipt Date: 20170814
  Transmission Date: 20171127
  Serious: Yes (Other)
  Sender: FDA-Public Use
  Company Number: None

PATIENT
  Age: 57 Year
  Sex: Female

DRUGS (6)
  1. NABUMETONE. [Concomitant]
     Active Substance: NABUMETONE
  2. CYMBALTA [Concomitant]
     Active Substance: DULOXETINE HYDROCHLORIDE
  3. METHOTREXATE. [Concomitant]
     Active Substance: METHOTREXATE
  4. LEUCOVORIN. [Concomitant]
     Active Substance: LEUCOVORIN
  5. TUMERIC POWDER [Concomitant]
  6. COSENTYX [Suspect]
     Active Substance: SECUKINUMAB
     Indication: PSORIATIC ARTHROPATHY
     Dosage: 300 MG EVERY 4 WEEKS SUBQ
     Route: 058
     Dates: start: 20170331

REACTIONS (1)
  - Tooth disorder [None]
